FAERS Safety Report 8315803-0 (Version None)
Quarter: 2012Q2

REPORT INFORMATION
  Report Type: 
  Country: None (occurrence: None)
  Receive Date: 20120427
  Receipt Date: 20120424
  Transmission Date: 20120825
  Serious: Yes (Hospitalization, Other)
  Sender: FDA-Public Use
  Company Number: US-AMGEN-USASP2012025938

PATIENT
  Sex: Female

DRUGS (1)
  1. NPLATE [Suspect]
     Indication: IDIOPATHIC THROMBOCYTOPENIC PURPURA
     Dosage: UNK UNK, QWK
     Dates: start: 20101216

REACTIONS (13)
  - HYPERSOMNIA [None]
  - HYPERTENSION [None]
  - HEPATIC CIRRHOSIS [None]
  - MOBILITY DECREASED [None]
  - HOSPITALISATION [None]
  - BLOOD GLUCOSE INCREASED [None]
  - PLATELET COUNT DECREASED [None]
  - FATIGUE [None]
  - FEELING ABNORMAL [None]
  - ASTHENIA [None]
  - BACK PAIN [None]
  - HEPATITIS C [None]
  - GAIT DISTURBANCE [None]
